FAERS Safety Report 13943243 (Version 1)
Quarter: 2017Q3

REPORT INFORMATION
  Report Type: Spontaneous
  Country: FR (occurrence: FR)
  Receive Date: 20170907
  Receipt Date: 20170907
  Transmission Date: 20171128
  Serious: Yes (Hospitalization, Other)
  Sender: FDA-Public Use
  Company Number: FR-ELI_LILLY_AND_COMPANY-FR201708010661

PATIENT
  Age: 0 Day
  Sex: Female

DRUGS (28)
  1. PROZAC [Suspect]
     Active Substance: FLUOXETINE HYDROCHLORIDE
     Dosage: 500 MG, DAILY
     Route: 064
  2. LITHIUM. [Suspect]
     Active Substance: LITHIUM
     Dosage: UNK, UNKNOWN
     Route: 064
     Dates: start: 20170317
  3. SERESTA [Suspect]
     Active Substance: OXAZEPAM
     Dosage: 500 NG, DAILY
     Route: 064
  4. SERESTA [Suspect]
     Active Substance: OXAZEPAM
     Dosage: 500 NG, DAILY
     Route: 064
  5. ANAFRANIL [Suspect]
     Active Substance: CLOMIPRAMINE HYDROCHLORIDE
     Indication: DEPRESSION
     Dosage: 75 MG, DAILY
     Route: 064
     Dates: start: 20170404, end: 20170624
  6. PROZAC [Suspect]
     Active Substance: FLUOXETINE HYDROCHLORIDE
     Indication: DEPRESSION
     Dosage: UNK, UNKNOWN
     Route: 064
  7. PROZAC [Suspect]
     Active Substance: FLUOXETINE HYDROCHLORIDE
     Dosage: 40 MG, DAILY
     Route: 064
     Dates: start: 20160917, end: 20170403
  8. PROZAC [Suspect]
     Active Substance: FLUOXETINE HYDROCHLORIDE
     Dosage: 20 MG, DAILY
     Route: 064
     Dates: start: 20170404, end: 20170624
  9. LITHIUM. [Suspect]
     Active Substance: LITHIUM
     Indication: DEPRESSION
     Dosage: UNK, UNKNOWN
     Route: 064
  10. LITHIUM. [Suspect]
     Active Substance: LITHIUM
     Dosage: 500 MG, DAILY
     Route: 064
     Dates: start: 20170331, end: 20170403
  11. LARGACTIL                          /00011901/ [Suspect]
     Active Substance: CHLORPROMAZINE
     Dosage: 500 MG, DAILY
     Route: 064
  12. PROZAC [Suspect]
     Active Substance: FLUOXETINE HYDROCHLORIDE
     Indication: DEPRESSION
     Dosage: UNK, UNKNOWN
     Route: 064
  13. LITHIUM. [Suspect]
     Active Substance: LITHIUM
     Indication: DEPRESSION
     Dosage: UNK, UNKNOWN
     Route: 064
  14. PROZAC [Suspect]
     Active Substance: FLUOXETINE HYDROCHLORIDE
     Dosage: 20 MG, DAILY
     Route: 064
     Dates: start: 20170404, end: 20170624
  15. LARGACTIL                          /00011901/ [Suspect]
     Active Substance: CHLORPROMAZINE
     Indication: DEPRESSION
     Dosage: 25 MG, DAILY
     Route: 064
     Dates: start: 20170127, end: 20170624
  16. PROZAC [Suspect]
     Active Substance: FLUOXETINE HYDROCHLORIDE
     Dosage: 40 MG, DAILY
     Route: 064
     Dates: start: 20160917, end: 20170403
  17. PROZAC [Suspect]
     Active Substance: FLUOXETINE HYDROCHLORIDE
     Dosage: 500 MG, DAILY
     Route: 064
  18. LITHIUM. [Suspect]
     Active Substance: LITHIUM
     Dosage: UNK, UNKNOWN
     Route: 064
     Dates: start: 20170317
  19. SERESTA [Suspect]
     Active Substance: OXAZEPAM
     Indication: DEPRESSION
     Dosage: 20 MG, DAILY
     Route: 064
     Dates: start: 20170331, end: 20170624
  20. LITHIUM. [Suspect]
     Active Substance: LITHIUM
     Dosage: 500 MG, DAILY
     Route: 064
     Dates: start: 20170209, end: 20170316
  21. LARGACTIL                          /00011901/ [Suspect]
     Active Substance: CHLORPROMAZINE
     Indication: DEPRESSION
     Dosage: 25 MG, DAILY
     Route: 064
     Dates: start: 20170127, end: 20170624
  22. SERESTA [Suspect]
     Active Substance: OXAZEPAM
     Indication: DEPRESSION
     Dosage: 20 MG, DAILY
     Route: 064
     Dates: start: 20170331, end: 20170624
  23. ANAFRANIL [Suspect]
     Active Substance: CLOMIPRAMINE HYDROCHLORIDE
     Indication: DEPRESSION
     Dosage: 75 MG, DAILY
     Route: 064
     Dates: start: 20170404, end: 20170624
  24. LITHIUM. [Suspect]
     Active Substance: LITHIUM
     Dosage: 500 MG, DAILY
     Route: 064
     Dates: start: 20170209, end: 20170316
  25. LITHIUM. [Suspect]
     Active Substance: LITHIUM
     Dosage: 500 MG, DAILY
     Route: 064
     Dates: start: 20170331, end: 20170403
  26. LITHIUM. [Suspect]
     Active Substance: LITHIUM
     Dosage: 250 MG, DAILY
     Route: 064
     Dates: start: 20170404
  27. LITHIUM. [Suspect]
     Active Substance: LITHIUM
     Dosage: 250 MG, DAILY
     Route: 064
     Dates: start: 20170404
  28. LARGACTIL                          /00011901/ [Suspect]
     Active Substance: CHLORPROMAZINE
     Dosage: 500 MG, DAILY
     Route: 064

REACTIONS (11)
  - Hypotonia neonatal [Recovering/Resolving]
  - Neonatal respiratory failure [Recovered/Resolved]
  - Poor feeding infant [Recovering/Resolving]
  - Foetal exposure during pregnancy [Recovered/Resolved]
  - Foetal macrosomia [Unknown]
  - Overdose [Recovered/Resolved]
  - Infantile apnoea [Recovered/Resolved]
  - Neonatal hypoxia [Unknown]
  - Gastrooesophageal reflux disease [Unknown]
  - Supraventricular extrasystoles [Not Recovered/Not Resolved]
  - Weight gain poor [Unknown]

NARRATIVE: CASE EVENT DATE: 20170624
